FAERS Safety Report 10271342 (Version 1)
Quarter: 2014Q3

REPORT INFORMATION
  Report Type: Spontaneous
  Country: DE (occurrence: DE)
  Receive Date: 20140701
  Receipt Date: 20140701
  Transmission Date: 20150326
  Serious: Yes (Other)
  Sender: FDA-Public Use
  Company Number: DE-PFIZER INC-2014177083

PATIENT
  Sex: Male

DRUGS (1)
  1. LONOLOX [Suspect]
     Active Substance: MINOXIDIL

REACTIONS (2)
  - Condition aggravated [Unknown]
  - Electrocardiogram QT prolonged [Unknown]
